FAERS Safety Report 5875059-5 (Version None)
Quarter: 2008Q3

REPORT INFORMATION
  Report Type: 
  Country: None (occurrence: None)
  Receive Date: 20080904
  Receipt Date: 20080825
  Transmission Date: 20090109
  Serious: Yes (Hospitalization)
  Sender: FDA-Public Use
  Company Number: 2008AL009839

PATIENT
  Age: 72 Year
  Sex: Male
  Weight: 84.8226 kg

DRUGS (2)
  1. DIGOXIN [Suspect]
     Indication: ATRIAL FIBRILLATION
     Dosage: DAILY, PO
     Route: 048
  2. WARFARIN SODIUM [Concomitant]

REACTIONS (3)
  - INFLUENZA [None]
  - VERTIGO [None]
  - VOMITING [None]
